FAERS Safety Report 13384834 (Version 1)
Quarter: 2017Q1

REPORT INFORMATION
  Report Type: Spontaneous
  Country: US (occurrence: US)
  Receive Date: 20170329
  Receipt Date: 20170329
  Transmission Date: 20170429
  Serious: No
  Sender: FDA-Public Use
  Company Number: None

PATIENT
  Age: 41 Year
  Sex: Female
  Weight: 42.75 kg

DRUGS (6)
  1. GLUCOSAMINE [Concomitant]
     Active Substance: GLUCOSAMINE
  2. FISH OIL [Concomitant]
     Active Substance: FISH OIL
  3. CALCIUM [Concomitant]
     Active Substance: CALCIUM
  4. ORTHO TRI CYCLEN [Concomitant]
     Active Substance: ETHINYL ESTRADIOL\NORGESTIMATE
  5. MULTIVITAMIN [Concomitant]
     Active Substance: VITAMINS
  6. DEXTROAMPHET SACCHARAT, AMPHET ASPARTATE, DEXTROAMPHET SULFATE AND AMPHET SULFAT [Suspect]
     Active Substance: AMPHETAMINE ASPARTATE\AMPHETAMINE SULFATE\DEXTROAMPHETAMINE SACCHARATE\DEXTROAMPHETAMINE SULFATE
     Indication: ATTENTION DEFICIT/HYPERACTIVITY DISORDER
     Dosage: ?          QUANTITY:60 TABLET(S);?
     Route: 048
     Dates: start: 20161202, end: 20170307

REACTIONS (2)
  - Insomnia [None]
  - Alopecia [None]

NARRATIVE: CASE EVENT DATE: 20170207
